FAERS Safety Report 8081602-0 (Version None)
Quarter: 2012Q1

REPORT INFORMATION
  Report Type: 
  Country: None (occurrence: None)
  Receive Date: 20120130
  Receipt Date: 20120127
  Transmission Date: 20120608
  Serious: Yes (Other)
  Sender: FDA-Public Use
  Company Number: CHPA2012TR001604

PATIENT
  Sex: Female
  Weight: 105 kg

DRUGS (1)
  1. OTRIVIN [Suspect]
     Dosage: UNK, 4-5 TIMES PER DAY
     Route: 045
     Dates: start: 19740101

REACTIONS (2)
  - THERAPEUTIC RESPONSE UNEXPECTED [None]
  - DRUG DEPENDENCE [None]
